FAERS Safety Report 20371935 (Version 1)
Quarter: 2022Q1

REPORT INFORMATION
  Report Type: Spontaneous
  Country: US (occurrence: US)
  Receive Date: 20220124
  Receipt Date: 20220124
  Transmission Date: 20220423
  Serious: No
  Sender: FDA-Public Use
  Company Number: US-ANIPHARMA-2021-US-015944

PATIENT
  Age: 35 Year
  Sex: Female
  Weight: 79.38 kg

DRUGS (1)
  1. METOCLOPRAMIDE [Suspect]
     Active Substance: METOCLOPRAMIDE
     Indication: Product used for unknown indication
     Route: 048
     Dates: start: 20150327, end: 20210327

REACTIONS (3)
  - Tremor [Recovered/Resolved]
  - Muscle spasms [Recovered/Resolved]
  - Palpitations [Recovered/Resolved]

NARRATIVE: CASE EVENT DATE: 20150327
